FAERS Safety Report 7669694-1 (Version None)
Quarter: 2011Q3

REPORT INFORMATION
  Report Type: 
  Country: None (occurrence: None)
  Receive Date: 20110803
  Receipt Date: 20110719
  Transmission Date: 20111222
  Serious: Yes (Hospitalization)
  Sender: FDA-Public Use
  Company Number: 2011MA009048

PATIENT
  Age: 33 Year
  Sex: Female

DRUGS (2)
  1. ATOSIBAN (ATOSIBAN) [Suspect]
     Indication: TOCOLYSIS
     Dosage: 6.75 MG, X1
  2. BETAMETHASONE DIPROPIONATE [Suspect]
     Indication: IMMATURE RESPIRATORY SYSTEM
     Dosage: 12 MG, 112H, IM
     Route: 030

REACTIONS (7)
  - BLOOD PH INCREASED [None]
  - TACHYCARDIA [None]
  - DYSPNOEA [None]
  - NON-CARDIOGENIC PULMONARY OEDEMA [None]
  - CAESAREAN SECTION [None]
  - MATERNAL EXPOSURE DURING PREGNANCY [None]
  - NASAL CONGESTION [None]
